FAERS Safety Report 5025041-5 (Version None)
Quarter: 2006Q2

REPORT INFORMATION
  Report Type: 
  Country: None (occurrence: None)
  Receive Date: 20060426
  Receipt Date: 20060227
  Transmission Date: 20061013
  Serious: Yes (Other)
  Sender: FDA-Public Use
  Company Number: 2006028886

PATIENT
  Age: 84 Year
  Sex: Female
  Weight: 65.318 kg

DRUGS (10)
  1. LYRICA [Suspect]
     Indication: DIABETIC NEUROPATHY
     Dosage: 150 MG (50 MG, 3 IN 1 D)
     Dates: start: 20060214
  2. PERCOCET [Concomitant]
  3. PLAVIX [Concomitant]
  4. NOLVADEX ^ASTRA ZENECA^ (TAMOXIFEN CITRATE) [Concomitant]
  5. PINDOLOL [Concomitant]
  6. NEXIUM [Concomitant]
  7. AMBIEN [Concomitant]
  8. VITAMIN B1 TAB [Concomitant]
  9. OS-CAL (CALCIUM, ERGOCALCIFEROL) [Concomitant]
  10. ZANTAC [Concomitant]

REACTIONS (8)
  - BURNING SENSATION [None]
  - DRUG INEFFECTIVE [None]
  - FALL [None]
  - HEADACHE [None]
  - MYALGIA [None]
  - SCRATCH [None]
  - SKIN DISCOLOURATION [None]
  - URTICARIA [None]
